FAERS Safety Report 5594945-7 (Version None)
Quarter: 2008Q1

REPORT INFORMATION
  Report Type: 
  Country: None (occurrence: None)
  Receive Date: 20080117
  Receipt Date: 20080111
  Transmission Date: 20080703
  Serious: Yes (Hospitalization)
  Sender: FDA-Public Use
  Company Number: GBWYE532805APR06

PATIENT
  Sex: Male
  Weight: 74 kg

DRUGS (4)
  1. RAPAMUNE [Suspect]
     Indication: RENAL TRANSPLANT
     Dosage: UNKNOWN
     Dates: start: 20050419, end: 20060306
  2. RAPAMUNE [Suspect]
     Dosage: UNKNOWN
     Dates: start: 20060321
  3. MYCOPHENOLATE MOFETIL [Concomitant]
     Indication: IMMUNOSUPPRESSION
     Dosage: 500MG
     Route: 048
     Dates: end: 20060411
  4. PREDNISOLONE [Concomitant]
     Indication: IMMUNOSUPPRESSION
     Dosage: 5MG
     Route: 048

REACTIONS (2)
  - CONFUSIONAL STATE [None]
  - CYTOMEGALOVIRUS GASTROENTERITIS [None]
